FAERS Safety Report 17957427 (Version 2)
Quarter: 2020Q3

REPORT INFORMATION
  Report Type: Report from Study
  Country: None (occurrence: US)
  Receive Date: 20200629
  Receipt Date: 20200724
  Transmission Date: 20201103
  Serious: Yes (Other)
  Sender: FDA-Public Use
  Company Number: US-ABBVIE-20K-163-3456339-00

PATIENT
  Age: 39 Year
  Sex: Female

DRUGS (2)
  1. HUMIRA [Suspect]
     Active Substance: ADALIMUMAB
     Indication: PSORIASIS
     Dosage: DAY 1
     Route: 058
     Dates: start: 20200619, end: 20200619
  2. HUMIRA [Suspect]
     Active Substance: ADALIMUMAB
     Route: 058
     Dates: start: 2020

REACTIONS (23)
  - Tinnitus [Unknown]
  - Cold sweat [Unknown]
  - Ear discomfort [Unknown]
  - Nerve compression [Unknown]
  - Nausea [Unknown]
  - Psoriasis [Unknown]
  - General physical condition abnormal [Unknown]
  - Deformity [Unknown]
  - Road traffic accident [Unknown]
  - Impaired quality of life [Unknown]
  - Vomiting [Unknown]
  - Self-consciousness [Not Recovered/Not Resolved]
  - Emotional distress [Unknown]
  - Anger [Unknown]
  - Injury [Unknown]
  - Psoriatic arthropathy [Unknown]
  - Loss of consciousness [Unknown]
  - Asthenopia [Unknown]
  - Frustration tolerance decreased [Unknown]
  - Sinus headache [Unknown]
  - Paraesthesia [Unknown]
  - Peripheral swelling [Unknown]
  - Arthralgia [Recovering/Resolving]

NARRATIVE: CASE EVENT DATE: 202006
